FAERS Safety Report 11977365 (Version 2)
Quarter: 2016Q2

REPORT INFORMATION
  Report Type: Spontaneous
  Country: US (occurrence: US)
  Receive Date: 20160129
  Receipt Date: 20160414
  Transmission Date: 20160815
  Serious: Yes (Hospitalization, Other)
  Sender: FDA-Public Use
  Company Number: US-PFIZER INC-2016044741

PATIENT
  Age: 63 Year
  Sex: Female
  Weight: 58 kg

DRUGS (6)
  1. CALTRATE [Concomitant]
     Active Substance: CALCIUM CARBONATE
     Indication: SUPPLEMENTATION THERAPY
     Dosage: 600 MG, 2X/DAY, AT BREAKFAST AND LUNCH
     Dates: start: 20150701
  2. LETROZOLE. [Suspect]
     Active Substance: LETROZOLE
     Indication: BREAST CANCER STAGE IV
     Dosage: 2.5 MG, 1X/DAY
     Dates: start: 20150701
  3. VITAMIN D3 [Concomitant]
     Active Substance: CHOLECALCIFEROL
     Indication: SUPPLEMENTATION THERAPY
     Dosage: 1 DF, 1X/DAY, AT DINNER TIME
     Dates: start: 201507
  4. BETALOC [Concomitant]
     Active Substance: METOPROLOL TARTRATE
     Indication: BLOOD PRESSURE MEASUREMENT
     Dosage: 25 MG, 1X/DAY, WITH SUPPER
     Dates: start: 200907
  5. XGEVA [Concomitant]
     Active Substance: DENOSUMAB
     Indication: SUPPLEMENTATION THERAPY
     Dosage: 125 MG, IN TUMMY, ONCE EVERY 4 WEEKS
     Route: 058
     Dates: start: 20150604
  6. IBRANCE [Suspect]
     Active Substance: PALBOCICLIB
     Indication: BREAST CANCER STAGE IV
     Dosage: 125 MG, 1X/DAY, 21 DAY ON, 7 DAY OFF
     Route: 048
     Dates: start: 20150801

REACTIONS (4)
  - Platelet count decreased [Not Recovered/Not Resolved]
  - Neutrophil count decreased [Not Recovered/Not Resolved]
  - White blood cell count decreased [Not Recovered/Not Resolved]
  - Femur fracture [Not Recovered/Not Resolved]

NARRATIVE: CASE EVENT DATE: 201508
